FAERS Safety Report 25294725 (Version 3)
Quarter: 2025Q3

REPORT INFORMATION
  Report Type: Spontaneous
  Country: US (occurrence: US)
  Receive Date: 20250511
  Receipt Date: 20250711
  Transmission Date: 20251021
  Serious: No
  Sender: SANOFI AVENTIS
  Company Number: US-SA-2025SA126261

PATIENT
  Age: 57 Year
  Sex: Female

DRUGS (1)
  1. DUPIXENT [Suspect]
     Active Substance: DUPILUMAB
     Indication: Dermatitis atopic
     Dosage: 300 MG, QOW
     Route: 058
     Dates: end: 2025

REACTIONS (10)
  - Dysphonia [Unknown]
  - Heart rate increased [Unknown]
  - Anxiety [Recovered/Resolved]
  - Urticaria [Recovered/Resolved]
  - Dermatitis atopic [Unknown]
  - Eczema [Unknown]
  - Injection site swelling [Unknown]
  - Hypersensitivity [Unknown]
  - Injection site reaction [Unknown]
  - Rash [Recovered/Resolved]

NARRATIVE: CASE EVENT DATE: 20250524
